FAERS Safety Report 24414598 (Version 1)
Quarter: 2024Q4

REPORT INFORMATION
  Report Type: Spontaneous
  Country: CA (occurrence: CA)
  Receive Date: 20241009
  Receipt Date: 20241009
  Transmission Date: 20250115
  Serious: Yes (Other)
  Sender: AUROBINDO
  Company Number: CA-AUROBINDO-AUR-APL-2024-048635

PATIENT
  Age: 61 Year
  Sex: Male
  Weight: 100 kg

DRUGS (7)
  1. IRINOTECAN HYDROCHLORIDE [Suspect]
     Active Substance: IRINOTECAN HYDROCHLORIDE
     Indication: Colorectal cancer metastatic
     Dosage: UNK
     Route: 065
  2. OXALIPLATIN [Suspect]
     Active Substance: OXALIPLATIN
     Indication: Colorectal cancer metastatic
     Dosage: UNK
     Route: 065
  3. LEUCOVORIN CALCIUM [Suspect]
     Active Substance: LEUCOVORIN CALCIUM
     Indication: Colorectal cancer metastatic
     Dosage: UNK
     Route: 065
  4. FLUOROURACIL [Suspect]
     Active Substance: FLUOROURACIL
     Indication: Colorectal cancer metastatic
     Dosage: UNK
     Route: 065
  5. ZIRABEV [Suspect]
     Active Substance: BEVACIZUMAB-BVZR
     Indication: Colorectal cancer metastatic
     Dosage: 500.0 MILLIGRAM
     Route: 042
  6. ZIRABEV [Suspect]
     Active Substance: BEVACIZUMAB-BVZR
     Indication: Colorectal cancer metastatic
     Dosage: 5.0 MG/KG
     Route: 042
  7. AMLODIPINE [Concomitant]
     Active Substance: AMLODIPINE BESYLATE
     Indication: Product used for unknown indication
     Dosage: 10.0 MILLIGRAM, ONCE A DAY
     Route: 048

REACTIONS (3)
  - Hypertension [Not Recovered/Not Resolved]
  - Neoplasm progression [Not Recovered/Not Resolved]
  - Off label use [Not Recovered/Not Resolved]
